FAERS Safety Report 18273743 (Version 1)
Quarter: 2020Q3

REPORT INFORMATION
  Report Type: Spontaneous
  Country: US (occurrence: US)
  Receive Date: 20200916
  Receipt Date: 20200916
  Transmission Date: 20201103
  Serious: Yes (Hospitalization)
  Sender: FDA-Public Use
  Company Number: US-MYLANLABS-2020M1079555

PATIENT
  Age: 37 Year
  Sex: Male

DRUGS (6)
  1. BEVACIZUMAB. [Suspect]
     Active Substance: BEVACIZUMAB
     Indication: RETINAL EXUDATES
     Dosage: 1.25 MILLIGRAM, ON TWO OCCASIONS
  2. ASPIRIN                            /00002701/ [Suspect]
     Active Substance: ASPIRIN
     Indication: HYPERTENSION
     Dosage: 81 MILLIGRAM
     Route: 065
  3. ASPIRIN                            /00002701/ [Suspect]
     Active Substance: ASPIRIN
     Indication: SUBACUTE KIDNEY INJURY
  4. PREDNISONE. [Suspect]
     Active Substance: PREDNISONE
     Indication: SYSTEMIC SCLERODERMA
     Dosage: 60 MILLIGRAM
     Route: 048
  5. CAPTOPRIL. [Suspect]
     Active Substance: CAPTOPRIL
     Indication: HYPERTENSION
     Route: 065
  6. CAPTOPRIL. [Suspect]
     Active Substance: CAPTOPRIL
     Indication: SUBACUTE KIDNEY INJURY

REACTIONS (6)
  - Vision blurred [Unknown]
  - Hypertension [Unknown]
  - Drug ineffective [Unknown]
  - Scleroderma renal crisis [Unknown]
  - Retinal exudates [Unknown]
  - Subacute kidney injury [Unknown]
